FAERS Safety Report 18890676 (Version 11)
Quarter: 2021Q2

REPORT INFORMATION
  Report Type: Report from Study
  Country: US (occurrence: US)
  Receive Date: 20210215
  Receipt Date: 20210610
  Transmission Date: 20210717
  Serious: Yes (Hospitalization)
  Sender: FDA-Public Use
  Company Number: US-ROCHE-2767130

PATIENT
  Age: 55 Year
  Sex: Female
  Weight: 71.6 kg

DRUGS (16)
  1. VITAMIN B12 [Concomitant]
     Active Substance: CYANOCOBALAMIN
     Dosage: 1 TABLET
     Route: 048
     Dates: start: 2009
  2. IMMUNOCYANINE [Suspect]
     Active Substance: KEYHOLE LIMPET HEMOCYANIN
     Indication: IMMUNE ENHANCEMENT THERAPY
     Dosage: START DATE OF MOST RECENT DOSE OF STUDY DRUG PRIOR TO AE: 18/MAY/2016
     Route: 058
     Dates: start: 20160323
  3. 23?PPV [Suspect]
     Active Substance: PNEUMOCOCCAL VACCINE, POLYVALENT 23
     Indication: PRODUCT USED FOR UNKNOWN INDICATION
     Dosage: MOST RECENT DOSE OF STUDY DRUG PRIOR TO AE 1 ML: 20/APR/2016
     Route: 030
     Dates: start: 20160420
  4. BACLOFEN. [Concomitant]
     Active Substance: BACLOFEN
     Indication: MUSCLE SPASTICITY
     Route: 048
     Dates: start: 201310
  5. ALEVE [Concomitant]
     Active Substance: NAPROXEN SODIUM
     Indication: ARTHRALGIA
     Route: 048
     Dates: start: 20160124
  6. BENADRYL [Concomitant]
     Active Substance: DIPHENHYDRAMINE HYDROCHLORIDE
     Indication: PROPHYLAXIS
     Route: 048
     Dates: start: 20210120, end: 20210120
  7. INFLUENZA VACCINE [Suspect]
     Active Substance: INFLUENZA VIRUS VACCINE
     Indication: PRODUCT USED FOR UNKNOWN INDICATION
     Dosage: MOST RECENT DOSE OF STUDY DRUG PRIOR TO AE 1 ML: 23/MAR/2016
     Route: 030
     Dates: start: 20160323
  8. ALEVE [Concomitant]
     Active Substance: NAPROXEN SODIUM
     Indication: NAUSEA
  9. CALCIUM [Concomitant]
     Active Substance: CALCIUM
     Indication: OSTEOPOROSIS
     Route: 048
     Dates: start: 20180215
  10. TESTOSTERONE. [Concomitant]
     Active Substance: TESTOSTERONE
     Indication: MENOPAUSE
     Route: 061
     Dates: start: 20180504
  11. TETANUS AND DIPHTHERIA TOXOIDS ADSORBED (VACCINE) [Suspect]
     Active Substance: CLOSTRIDIUM TETANI\CLOSTRIDIUM TETANI TOXOID ANTIGEN (FORMALDEHYDE INACTIVATED)\CORYNEBACTERIUM DIPHTHERIAE\CORYNEBACTERIUM DIPHTHERIAE TOXOID ANTIGEN (FORMALDEHYDE INACTIVATED)
     Indication: PRODUCT USED FOR UNKNOWN INDICATION
     Dosage: MOST RECENT DOSE OF STUDY DRUG PRIOR TO AE 1 ML: 23/MAR/2016
     Route: 030
     Dates: start: 20160323
  12. ALEVE [Concomitant]
     Active Substance: NAPROXEN SODIUM
     Indication: BACK PAIN
  13. VALACYCLOVIR [Concomitant]
     Active Substance: VALACYCLOVIR HYDROCHLORIDE
     Indication: HERPES SIMPLEX
     Route: 048
     Dates: start: 20180504
  14. OCRELIZUMAB. [Suspect]
     Active Substance: OCRELIZUMAB
     Indication: RELAPSING-REMITTING MULTIPLE SCLEROSIS
     Dosage: MOST RECENT DOSE OF STUDY DRUG PRIOR TO AE IS 600 MG: 20/JAN/2021?FREQUENCY: OTHER
     Route: 042
     Dates: start: 20151230
  15. METHYLPREDNISOLONE. [Suspect]
     Active Substance: METHYLPREDNISOLONE
     Indication: PRODUCT USED FOR UNKNOWN INDICATION
     Dosage: MOST RECENT DOSE OF STUDY DRUG PRIOR TO AE 50 MG: 20/JAN/2021
     Route: 042
     Dates: start: 20151230
  16. PROGESTERONE. [Concomitant]
     Active Substance: PROGESTERONE
     Indication: MENOPAUSE
     Route: 048
     Dates: start: 20180504

REACTIONS (2)
  - Pneumonia [Recovered/Resolved]
  - Disseminated varicella zoster virus infection [Recovered/Resolved]

NARRATIVE: CASE EVENT DATE: 20210131
